FAERS Safety Report 7354995-7 (Version None)
Quarter: 2011Q1

REPORT INFORMATION
  Report Type: 
  Country: None (occurrence: None)
  Receive Date: 20110316
  Receipt Date: 20110308
  Transmission Date: 20110831
  Serious: Yes (Hospitalization)
  Sender: FDA-Public Use
  Company Number: IT-BAYER-2011-021585

PATIENT
  Age: 38 Year
  Sex: Male

DRUGS (6)
  1. CLOPIDOGREL [Suspect]
     Dosage: 75 MG, UNK
  2. RITONAVIR [Concomitant]
  3. LAMIVUDINE [Concomitant]
  4. ABACAVIR [Concomitant]
  5. KOGENATE [Suspect]
  6. LOPINAVIR [Concomitant]

REACTIONS (2)
  - HAEMORRHAGIC DIATHESIS [None]
  - ACUTE MYOCARDIAL INFARCTION [None]
